FAERS Safety Report 6368976-3 (Version None)
Quarter: 2009Q3

REPORT INFORMATION
  Report Type: 
  Country: None (occurrence: None)
  Receive Date: 20090922
  Receipt Date: 20090909
  Transmission Date: 20100115
  Serious: Yes (Other)
  Sender: FDA-Public Use
  Company Number: DE-ELI_LILLY_AND_COMPANY-DE200908002475

PATIENT
  Age: 58 Year
  Sex: Male
  Weight: 92 kg

DRUGS (9)
  1. BYETTA [Suspect]
     Indication: TYPE 2 DIABETES MELLITUS
     Dosage: 5 UG, 2/D
     Route: 058
     Dates: start: 20090604, end: 20090703
  2. BYETTA [Suspect]
     Dosage: 10 UG, 2/D
     Route: 058
     Dates: start: 20090704, end: 20090801
  3. SORTIS [Concomitant]
     Dosage: UNK, UNKNOWN
     Route: 065
  4. FENOFIBRAT [Concomitant]
     Dosage: UNK, UNKNOWN
     Route: 065
  5. RAMIPRIL PLUS [Concomitant]
     Dosage: UNK, UNKNOWN
     Route: 065
  6. NEBILET [Concomitant]
     Dosage: UNK, UNKNOWN
     Route: 065
  7. ASPIRIN [Concomitant]
     Dosage: UNK, UNKNOWN
     Route: 065
  8. GLUCOPHAGE [Concomitant]
     Dosage: UNK, UNKNOWN
     Route: 065
  9. PANTOZOL [Concomitant]
     Dosage: UNK, UNKNOWN
     Route: 065

REACTIONS (7)
  - DIABETES MELLITUS [None]
  - DIARRHOEA [None]
  - GENITAL HERPES [None]
  - HEADACHE [None]
  - HYPERHIDROSIS [None]
  - PAIN IN EXTREMITY [None]
  - PANCREATITIS [None]
